FAERS Safety Report 20265100 (Version 1)
Quarter: 2021Q4

REPORT INFORMATION
  Report Type: Spontaneous
  Country: US (occurrence: US)
  Receive Date: 20211231
  Receipt Date: 20211231
  Transmission Date: 20220303
  Serious: No
  Sender: FDA-Public Use
  Company Number: US-PFIZER INC-202101598607

PATIENT
  Age: 67 Year
  Sex: Female
  Weight: 72.57 kg

DRUGS (1)
  1. XELJANZ [Suspect]
     Active Substance: TOFACITINIB CITRATE
     Indication: Rheumatoid arthritis
     Dosage: 5 MG

REACTIONS (5)
  - Malaise [Unknown]
  - Influenza [Unknown]
  - Abdominal discomfort [Unknown]
  - Reflux gastritis [Unknown]
  - Drug ineffective [Unknown]
